FAERS Safety Report 19084238 (Version 1)
Quarter: 2021Q2

REPORT INFORMATION
  Report Type: Spontaneous
  Country: CA (occurrence: CA)
  Receive Date: 20210401
  Receipt Date: 20210401
  Transmission Date: 20210717
  Serious: Yes (Other)
  Sender: FDA-Public Use
  Company Number: CA-IGSA-BIG0013887

PATIENT
  Age: 53 Year
  Sex: Female

DRUGS (4)
  1. HUMAN NORMAL IMMUNOGLOBULIN (IV) [Suspect]
     Active Substance: HUMAN IMMUNOGLOBULIN G
     Indication: PARANEOPLASTIC DERMATOMYOSITIS
     Dosage: 80 GRAM, QD
     Route: 042
  2. DALTEPARIN [Concomitant]
     Active Substance: DALTEPARIN
     Indication: VENOUS THROMBOSIS
  3. PREDNISONE. [Concomitant]
     Active Substance: PREDNISONE
     Route: 048
  4. METHYLPREDNISOLONE. [Concomitant]
     Active Substance: METHYLPREDNISOLONE
     Route: 042

REACTIONS (4)
  - Autoimmune haemolytic anaemia [Unknown]
  - Shock haemorrhagic [Unknown]
  - Retroperitoneal haemorrhage [Unknown]
  - Haematoma [Unknown]
